FAERS Safety Report 6227518-3 (Version None)
Quarter: 2009Q2

REPORT INFORMATION
  Report Type: 
  Country: None (occurrence: None)
  Receive Date: 20090612
  Receipt Date: 20090608
  Transmission Date: 20091009
  Serious: Yes (Hospitalization, Other)
  Sender: FDA-Public Use
  Company Number: US-TEVA-197813USA

PATIENT
  Sex: Male

DRUGS (4)
  1. FLUOROURACIL [Suspect]
     Indication: NEOPLASM
     Route: 042
     Dates: start: 20080703, end: 20080730
  2. FOLINIC ACID [Suspect]
     Indication: NEOPLASM
     Route: 042
     Dates: start: 20080703, end: 20080730
  3. BMS690514 [Suspect]
     Route: 048
     Dates: start: 20080728, end: 20080808
  4. OXALIPLATIN [Suspect]
     Indication: NEOPLASM
     Route: 042
     Dates: start: 20080703, end: 20080730

REACTIONS (4)
  - ASCITES [None]
  - BLOOD CREATININE INCREASED [None]
  - BLOOD UREA INCREASED [None]
  - DISEASE PROGRESSION [None]
